FAERS Safety Report 20257540 (Version 1)
Quarter: 2021Q4

REPORT INFORMATION
  Report Type: Spontaneous
  Country: CA (occurrence: CA)
  Receive Date: 20211230
  Receipt Date: 20211230
  Transmission Date: 20220303
  Serious: Yes (Death)
  Sender: FDA-Public Use
  Company Number: CA-JNJFOC-20211249720

PATIENT
  Age: 49 Year
  Sex: Female

DRUGS (7)
  1. RISPERDAL [Interacting]
     Active Substance: RISPERIDONE
     Indication: Psychiatric disorder prophylaxis
     Route: 065
  2. CELEXA [Interacting]
     Active Substance: CITALOPRAM HYDROBROMIDE
     Indication: Antidepressant therapy
     Route: 065
  3. LAMICTAL [Interacting]
     Active Substance: LAMOTRIGINE
     Indication: Seizure prophylaxis
     Route: 065
  4. RESTORIL [Interacting]
     Active Substance: TEMAZEPAM
     Indication: Sleep disorder
     Route: 065
  5. SEROQUEL [Interacting]
     Active Substance: QUETIAPINE FUMARATE
     Indication: Psychiatric disorder prophylaxis
     Route: 065
  6. COGENTIN [Concomitant]
     Active Substance: BENZTROPINE MESYLATE
     Indication: Product used for unknown indication
     Route: 065
  7. SYNTHROID [Concomitant]
     Active Substance: LEVOTHYROXINE SODIUM
     Indication: Product used for unknown indication
     Route: 065

REACTIONS (16)
  - Accidental death [Fatal]
  - Antidepressant drug level above therapeutic [Fatal]
  - Confusional state [Fatal]
  - Death [Fatal]
  - Drug interaction [Fatal]
  - Electrocardiogram QT prolonged [Fatal]
  - Food interaction [Fatal]
  - Labelled drug-drug interaction issue [Fatal]
  - Malaise [Fatal]
  - Mental impairment [Fatal]
  - Pneumonia [Fatal]
  - Postmortem blood drug level [Fatal]
  - Potentiating drug interaction [Fatal]
  - Respiratory depression [Fatal]
  - Somnolence [Fatal]
  - Ventricular arrhythmia [Fatal]
